FAERS Safety Report 9493531 (Version 1)
Quarter: 2013Q3

REPORT INFORMATION
  Report Type: Spontaneous
  Country: US (occurrence: US)
  Receive Date: 20130902
  Receipt Date: 20130902
  Transmission Date: 20140515
  Serious: No
  Sender: FDA-Public Use
  Company Number: US-PFIZER INC-2013249546

PATIENT
  Sex: Female
  Weight: 72.56 kg

DRUGS (4)
  1. ADVIL [Suspect]
     Indication: ARTHRALGIA
     Dosage: 1 CAPSULE, EVERY THREE HOURS
     Dates: start: 2013
  2. TYLENOL [Suspect]
     Indication: ARTHRALGIA
     Dosage: 2 TABLETS, EVERY THREE HOURS
     Dates: start: 2013
  3. FISH OIL [Concomitant]
     Dosage: UNK
  4. CALCIUM [Concomitant]
     Dosage: UNK

REACTIONS (4)
  - Inappropriate schedule of drug administration [Unknown]
  - Overdose [Unknown]
  - Drug ineffective [Unknown]
  - Muscle disorder [Unknown]
